FAERS Safety Report 24591008 (Version 2)
Quarter: 2024Q4

REPORT INFORMATION
  Report Type: Spontaneous
  Country: CA (occurrence: CA)
  Receive Date: 20241107
  Receipt Date: 20241109
  Transmission Date: 20250115
  Serious: Yes (Other)
  Sender: CELLTRION
  Company Number: CA-PFIZER INC-202400291255

PATIENT

DRUGS (3)
  1. INFLECTRA [Suspect]
     Active Substance: INFLIXIMAB-DYYB
     Indication: Crohn^s disease
     Dosage: 800 MG, Q 6 WEEKS
     Route: 042
     Dates: start: 20230602
  2. INFLECTRA [Suspect]
     Active Substance: INFLIXIMAB-DYYB
     Dosage: 800 MG, Q 6 WEEKS
     Route: 042
     Dates: start: 20240916
  3. INFLECTRA [Suspect]
     Active Substance: INFLIXIMAB-DYYB
     Dosage: 800 MG, Q 6 WEEKS
     Route: 042

REACTIONS (5)
  - Skin lesion [Not Recovered/Not Resolved]
  - Post procedural discharge [Not Recovered/Not Resolved]
  - Post procedural erythema [Not Recovered/Not Resolved]
  - Procedural pain [Not Recovered/Not Resolved]
  - Bloody discharge [Not Recovered/Not Resolved]
